FAERS Safety Report 19069384 (Version 1)
Quarter: 2021Q1

REPORT INFORMATION
  Report Type: Spontaneous
  Country: JP (occurrence: JP)
  Receive Date: 20210329
  Receipt Date: 20210329
  Transmission Date: 20210420
  Serious: Yes (Death, Life-Threatening)
  Sender: FDA-Public Use
  Company Number: JP-EISAI MEDICAL RESEARCH-EC-2021-090301

PATIENT
  Age: 62 Year
  Sex: Female

DRUGS (2)
  1. LENVATINIB [Suspect]
     Active Substance: LENVATINIB
     Indication: THYROID CANCER
     Dosage: DOSAGE AND FREQUENCY UNKNOWN
     Route: 048
  2. LENVATINIB [Suspect]
     Active Substance: LENVATINIB
     Dosage: DOSAGE AND FREQUENCY UNKNOWN (DOSAGE REDUCED)
     Route: 048

REACTIONS (5)
  - Incision site ulcer [Not Recovered/Not Resolved]
  - Incision site erosion [Not Recovered/Not Resolved]
  - Post procedural haemorrhage [Fatal]
  - Vessel perforation [Not Recovered/Not Resolved]
  - Impaired healing [Not Recovered/Not Resolved]
